FAERS Safety Report 14874281 (Version 1)
Quarter: 2018Q2

REPORT INFORMATION
  Report Type: Spontaneous
  Country: US (occurrence: US)
  Receive Date: 20180510
  Receipt Date: 20180510
  Transmission Date: 20180711
  Serious: Yes (Other)
  Sender: FDA-Public Use
  Company Number: US-DENTSPLY-2018SCDP000114

PATIENT

DRUGS (2)
  1. 2% LIDOCAINE HCL INJECTION WITH EPINEPHRINE 1-100,000 [Suspect]
     Active Substance: EPINEPHRINE\LIDOCAINE HYDROCHLORIDE
     Indication: NERVE BLOCK
     Dosage: UNK
  2. LIDOCAINE HCL [Suspect]
     Active Substance: LIDOCAINE HYDROCHLORIDE
     Indication: LOCAL ANAESTHESIA
     Dosage: 1.5% LIDOCAINE

REACTIONS (5)
  - Myopathy toxic [Recovered/Resolved]
  - Hypotension [Unknown]
  - Myositis [None]
  - Joint swelling [None]
  - Dizziness [Unknown]
